FAERS Safety Report 5557831-4 (Version None)
Quarter: 2007Q4

REPORT INFORMATION
  Report Type: 
  Country: None (occurrence: None)
  Receive Date: 20071214
  Receipt Date: 20061115
  Transmission Date: 20080405
  Serious: No
  Sender: FDA-Public Use
  Company Number: US-KINGPHARMUSA00001-K200601480

PATIENT

DRUGS (6)
  1. APLISOL [Suspect]
     Indication: TUBERCULIN TEST
     Dosage: .25 ML, SINGLE
     Route: 030
     Dates: start: 20061115, end: 20061115
  2. EPIPEN JR. [Concomitant]
     Indication: FOOD ALLERGY
     Dosage: UNK, PRN
  3. ZYRTEC [Concomitant]
     Indication: HYPERSENSITIVITY
     Dosage: UNK, QD
     Route: 048
  4. SINGULAIR [Concomitant]
     Indication: HYPERSENSITIVITY
     Dosage: 4 MG, QD
     Route: 048
  5. NASONEX [Concomitant]
     Indication: HYPERSENSITIVITY
     Dosage: UNK, PRN
     Route: 045
  6. BENADRYL [Concomitant]
     Indication: HYPERSENSITIVITY
     Dosage: UNK, PRN
     Route: 048

REACTIONS (2)
  - INCORRECT DOSE ADMINISTERED [None]
  - INCORRECT ROUTE OF DRUG ADMINISTRATION [None]
